FAERS Safety Report 22981348 (Version 2)
Quarter: 2023Q4

REPORT INFORMATION
  Report Type: Spontaneous
  Country: SG (occurrence: None)
  Receive Date: 20230925
  Receipt Date: 20231009
  Transmission Date: 20240110
  Serious: Yes (Other)
  Sender: FDA-Public Use
  Company Number: SG-ROCHE-3426732

PATIENT
  Sex: Female
  Weight: 54.4 kg

DRUGS (2)
  1. PERJETA [Suspect]
     Active Substance: PERTUZUMAB
     Indication: Breast cancer metastatic
     Route: 065
  2. HERCEPTIN [Suspect]
     Active Substance: TRASTUZUMAB
     Indication: Breast cancer metastatic
     Dosage: LAST DOSE ON 12 SEP 2023
     Route: 065

REACTIONS (6)
  - Neoplasm [Unknown]
  - Alopecia [Unknown]
  - Fatigue [Unknown]
  - Urinary tract infection [Unknown]
  - Balance disorder [Unknown]
  - Tremor [Unknown]
